FAERS Safety Report 20973394 (Version 1)
Quarter: 2022Q2

REPORT INFORMATION
  Report Type: Spontaneous
  Country: JP (occurrence: JP)
  Receive Date: 20220617
  Receipt Date: 20220617
  Transmission Date: 20220720
  Serious: Yes (Other)
  Sender: FDA-Public Use
  Company Number: JP-ALXN-A202206955AA

PATIENT
  Age: 71 Year
  Sex: Female

DRUGS (3)
  1. ULTOMIRIS [Suspect]
     Active Substance: RAVULIZUMAB-CWVZ
     Indication: Paroxysmal nocturnal haemoglobinuria
     Dosage: UNK
     Route: 042
  2. COVID-19 Vaccine [Concomitant]
     Indication: COVID-19 immunisation
     Dosage: SINGLE
     Route: 030
  3. COVID-19 Vaccine [Concomitant]
     Dosage: SINGLE
     Route: 030

REACTIONS (2)
  - Haemoglobinuria [Recovered/Resolved]
  - Haemoglobin decreased [Recovered/Resolved]
